FAERS Safety Report 10670875 (Version 2)
Quarter: 2015Q2

REPORT INFORMATION
  Report Type: Spontaneous
  Country: AT (occurrence: AT)
  Receive Date: 20141223
  Receipt Date: 20150416
  Transmission Date: 20150821
  Serious: Yes (Death, Other)
  Sender: FDA-Public Use
  Company Number: AT-SA-2014SA174684

PATIENT
  Age: 85 Year

DRUGS (1)
  1. JEVTANA [Suspect]
     Active Substance: CABAZITAXEL
     Indication: SMALL CELL CARCINOMA
     Dosage: DOSE: 25/40 MG, 7 CYCLES
     Route: 065
     Dates: start: 20130114

REACTIONS (3)
  - Cachexia [Fatal]
  - Malignant neoplasm progression [Unknown]
  - Metastasis [Fatal]

NARRATIVE: CASE EVENT DATE: 20130916
